FAERS Safety Report 15473743 (Version 1)
Quarter: 2018Q4

REPORT INFORMATION
  Report Type: Spontaneous
  Country: JP (occurrence: JP)
  Receive Date: 20181008
  Receipt Date: 20181008
  Transmission Date: 20190205
  Serious: Yes (Other)
  Sender: FDA-Public Use
  Company Number: JP-PFIZER INC-2018390681

PATIENT
  Age: 70 Year

DRUGS (5)
  1. VFEND [Suspect]
     Active Substance: VORICONAZOLE
     Indication: ASPERGILLOMA
  2. STELARA [Concomitant]
     Active Substance: USTEKINUMAB
     Indication: PSORIASIS
  3. VFEND [Suspect]
     Active Substance: VORICONAZOLE
     Indication: ASPERGILLOMA
  4. VFEND [Suspect]
     Active Substance: VORICONAZOLE
     Indication: CANDIDA ENDOPHTHALMITIS
     Dosage: UNK
     Route: 048
  5. VFEND [Suspect]
     Active Substance: VORICONAZOLE
     Indication: CANDIDA ENDOPHTHALMITIS
     Dosage: UNK
     Route: 041
     Dates: start: 20180923, end: 20180924

REACTIONS (3)
  - Renal failure [Recovering/Resolving]
  - Hepatic failure [Recovering/Resolving]
  - Circulatory collapse [Recovering/Resolving]

NARRATIVE: CASE EVENT DATE: 20180925
